FAERS Safety Report 6526226-9 (Version None)
Quarter: 2009Q4

REPORT INFORMATION
  Report Type: 
  Country: None (occurrence: None)
  Receive Date: 20091228
  Receipt Date: 20091221
  Transmission Date: 20100525
  Serious: Yes (Hospitalization)
  Sender: FDA-Public Use
  Company Number: FABR-1001077

PATIENT
  Age: 51 Year
  Sex: Female
  Weight: 79.9 kg

DRUGS (10)
  1. FABRAZYME [Suspect]
     Indication: FABRY'S DISEASE
     Dosage: 80 MG, Q2W ; 80 MG, Q2W, INTRAVENOUS
     Route: 042
     Dates: start: 20030815, end: 20090102
  2. FABRAZYME [Suspect]
     Indication: FABRY'S DISEASE
     Dosage: 80 MG, Q2W ; 80 MG, Q2W, INTRAVENOUS
     Route: 042
     Dates: start: 20090327
  3. FABRAZYME [Suspect]
  4. VICODIN [Concomitant]
  5. DIOVAN [Concomitant]
  6. ZOLOFT [Concomitant]
  7. ACIPHEX [Concomitant]
  8. VITAMIN B COMPLEX CAP [Concomitant]
  9. VASOTEC [Concomitant]
  10. COMBIGAN (BRIMONIDINE TARTRATE, TIMOLOL MALEATE) [Concomitant]

REACTIONS (3)
  - ANKLE FRACTURE [None]
  - FALL [None]
  - TRAUMATIC FRACTURE [None]
